FAERS Safety Report 20193941 (Version 1)
Quarter: 2021Q4

REPORT INFORMATION
  Report Type: Spontaneous
  Country: RU (occurrence: None)
  Receive Date: 20211216
  Receipt Date: 20211216
  Transmission Date: 20220303
  Serious: Yes (Hospitalization)
  Sender: FDA-Public Use
  Company Number: 2021A868342

PATIENT
  Age: 56 Year
  Sex: Female
  Weight: 112 kg

DRUGS (4)
  1. DAPAGLIFLOZIN [Suspect]
     Active Substance: DAPAGLIFLOZIN
     Indication: Type 2 diabetes mellitus
     Dosage: 10.0MG UNKNOWN
     Route: 048
     Dates: start: 20210610, end: 20210619
  2. LOSARTAN POTASSIUM [Concomitant]
     Active Substance: LOSARTAN POTASSIUM
     Indication: Hypertensive heart disease
     Route: 048
     Dates: start: 200009
  3. BISOPROLOL [Concomitant]
     Active Substance: BISOPROLOL
     Indication: Hypertensive heart disease
     Route: 048
     Dates: start: 200901
  4. SPIRONOLACTONE [Concomitant]
     Active Substance: SPIRONOLACTONE
     Indication: Hypertensive heart disease
     Route: 048
     Dates: start: 200009

REACTIONS (6)
  - Angioedema [Recovered/Resolved]
  - Dry mouth [Recovered/Resolved]
  - Back pain [Recovered/Resolved]
  - Genital candidiasis [Recovered/Resolved]
  - Oedema peripheral [Recovered/Resolved]
  - Face oedema [Recovered/Resolved]

NARRATIVE: CASE EVENT DATE: 20210614
